FAERS Safety Report 14484744 (Version 1)
Quarter: 2018Q1

REPORT INFORMATION
  Report Type: Other
  Country: IT (occurrence: IT)
  Receive Date: 20180205
  Receipt Date: 20180205
  Transmission Date: 20180509
  Serious: Yes (Other)
  Sender: FDA-Public Use
  Company Number: IT-GLENMARK PHARMACEUTICALS-2017GMK030990

PATIENT

DRUGS (6)
  1. CARDIOASPIRIN [Concomitant]
     Active Substance: ASPIRIN
     Indication: PRODUCT USED FOR UNKNOWN INDICATION
     Dosage: 100 MG GASTRO-RESISTANT TABLETS 30 TABLETS ()
     Route: 065
  2. PRAMIPEXOLE DIHYDROCHLORIDE MONOHYDRATE TABLETS [Interacting]
     Active Substance: PRAMIPEXOLE DIHYDROCHLORIDE
     Dosage: 0.36 G, UNK
     Route: 048
     Dates: start: 20170311, end: 20170311
  3. LEVOPRAID                          /01142501/ [Interacting]
     Active Substance: LEVOSULPIRIDE
     Indication: DEPRESSION
     Dosage: 25 MG TABLETS 20 TABLETS
     Route: 048
     Dates: start: 20140311, end: 20170311
  4. PRAMIPEXOLE DIHYDROCHLORIDE MONOHYDRATE TABLETS [Suspect]
     Active Substance: PRAMIPEXOLE DIHYDROCHLORIDE
     Indication: PRODUCT USED FOR UNKNOWN INDICATION
     Dosage: 0.18 G, UNK
     Route: 048
     Dates: start: 20161111, end: 20170311
  5. LEVOPRAID                          /01142501/ [Interacting]
     Active Substance: LEVOSULPIRIDE
     Indication: ANXIETY
     Dosage: UNK
     Route: 065
  6. RIVOTRIL [Suspect]
     Active Substance: CLONAZEPAM
     Indication: PRODUCT USED FOR UNKNOWN INDICATION
     Dosage: 2.5MG/ML ORAL DROPS, SOLUTION 10 ML VIAL ; IN TOTAL
     Route: 048
     Dates: start: 20170310, end: 20170311

REACTIONS (4)
  - Restless legs syndrome [Recovering/Resolving]
  - Hallucination [Recovering/Resolving]
  - Drug interaction [Unknown]
  - Confusional state [Recovering/Resolving]

NARRATIVE: CASE EVENT DATE: 20170311
